FAERS Safety Report 19349437 (Version 2)
Quarter: 2022Q2

REPORT INFORMATION
  Report Type: Other
  Country: DE (occurrence: DE)
  Receive Date: 20210531
  Receipt Date: 20220423
  Transmission Date: 20220721
  Serious: Yes (Other)
  Sender: FDA-Public Use
  Company Number: DE-EMBRYOTOX-202000641

PATIENT
  Age: 40 Year
  Sex: Female
  Weight: 92 kg

DRUGS (6)
  1. QUETIAPINE FUMARATE [Suspect]
     Active Substance: QUETIAPINE FUMARATE
     Indication: Bipolar disorder
     Dosage: 50 MILLIGRAM, QD, 0 TO 39.5. GESTATIONAL WEEK
     Route: 048
     Dates: start: 20191021, end: 20200725
  2. LITHIUM CARBONATE [Suspect]
     Active Substance: LITHIUM CARBONATE
     Indication: Bipolar disorder
     Dosage: 800 MILLIGRAM, QD
     Route: 048
     Dates: start: 20191021, end: 20200725
  3. PERTUSSIS VACCINE [Suspect]
     Active Substance: PERTUSSIS VACCINE
     Indication: Immunisation
     Dosage: UNK
     Route: 030
  4. CLOMIPHENE [Suspect]
     Active Substance: CLOMIPHENE
     Indication: Infertility female
     Dosage: UNK, 0 TO 3.5 GESTATIONAL WEEK
     Route: 048
  5. TETANUS TOXOID ADSORBED (VACCINE) [Suspect]
     Active Substance: CLOSTRIDIUM TETANI TOXOID ANTIGEN (FORMALDEHYDE INACTIVATED)
     Indication: Immunisation
     Dosage: UNK
     Route: 030
  6. FOLIC ACID [Suspect]
     Active Substance: FOLIC ACID
     Indication: Prophylaxis of neural tube defect
     Dosage: UNK
     Route: 048
     Dates: start: 20191021, end: 20200725

REACTIONS (2)
  - Gestational diabetes [Recovered/Resolved]
  - Exposure during pregnancy [Unknown]
